FAERS Safety Report 5139404-0 (Version None)
Quarter: 2006Q4

REPORT INFORMATION
  Report Type: 
  Country: None (occurrence: None)
  Receive Date: 20061030
  Receipt Date: 20051118
  Transmission Date: 20070319
  Serious: No
  Sender: FDA-Public Use
  Company Number: US-GLAXOSMITHKLINE-A0582898A

PATIENT
  Age: 74 Year
  Sex: Male

DRUGS (7)
  1. SEREVENT [Suspect]
     Indication: ASTHMA
     Route: 055
  2. AEROBID [Concomitant]
  3. HYDROCHLOROTHIAZIDE [Concomitant]
  4. POTASSIUM ACETATE [Concomitant]
  5. MULTI-VITAMIN [Concomitant]
  6. OCUVITE [Concomitant]
  7. ALBUTEROL [Concomitant]

REACTIONS (1)
  - DYSPNOEA [None]
